FAERS Safety Report 14017620 (Version 3)
Quarter: 2018Q3

REPORT INFORMATION
  Report Type: Spontaneous
  Country: NL (occurrence: NL)
  Receive Date: 20170927
  Receipt Date: 20180716
  Transmission Date: 20181010
  Serious: Yes (Hospitalization, Other)
  Sender: FDA-Public Use
  Company Number: NL-009507513-0510NLD00020

PATIENT
  Age: 55 Year
  Sex: Female

DRUGS (6)
  1. ZYRTEC [Concomitant]
     Active Substance: CETIRIZINE HYDROCHLORIDE
     Dosage: 10  ?G, QD
     Route: 048
     Dates: start: 19940101, end: 20050704
  2. FLIXONASE [Concomitant]
     Active Substance: FLUTICASONE PROPIONATE
     Dosage: 40 MICROGRAM, QD
     Dates: start: 20050227, end: 20050704
  3. MONTELUKAST SODIUM. [Suspect]
     Active Substance: MONTELUKAST SODIUM
     Indication: CHRONIC OBSTRUCTIVE PULMONARY DISEASE
     Dosage: 10 MG, UNK
     Route: 048
     Dates: start: 20041020, end: 20050704
  4. SERETIDE [Concomitant]
     Active Substance: FLUTICASONE PROPIONATE\SALMETEROL XINAFOATE
     Dosage: 250 MG, UNK
     Dates: start: 20050201
  5. SERETIDE [Concomitant]
     Active Substance: FLUTICASONE PROPIONATE\SALMETEROL XINAFOATE
     Dosage: 500 MG, UNK
  6. SERETIDE [Concomitant]
     Active Substance: FLUTICASONE PROPIONATE\SALMETEROL XINAFOATE
     Indication: ASTHMA
     Dosage: 500 MG, UNK
     Dates: start: 20041020, end: 20050704

REACTIONS (4)
  - Malaise [Recovering/Resolving]
  - Eosinophilic granulomatosis with polyangiitis [Recovered/Resolved]
  - Diabetes mellitus [Unknown]
  - Anaemia [Unknown]

NARRATIVE: CASE EVENT DATE: 200503
